FAERS Safety Report 6660386-4 (Version None)
Quarter: 2010Q1

REPORT INFORMATION
  Report Type: 
  Country: None (occurrence: None)
  Receive Date: 20100331
  Receipt Date: 20100317
  Transmission Date: 20100710
  Serious: Yes (Hospitalization)
  Sender: FDA-Public Use
  Company Number: NO-RANBAXY-2010RR-32577

PATIENT
  Sex: Male

DRUGS (4)
  1. SIMVASTATIN [Suspect]
     Route: 048
     Dates: start: 20070701, end: 20080201
  2. SELO-ZOK [Concomitant]
     Route: 048
     Dates: start: 20070701
  3. MAREVAN [Concomitant]
     Route: 048
     Dates: start: 20070701
  4. RAMIPRIL [Concomitant]
     Route: 048
     Dates: start: 20071001, end: 20071201

REACTIONS (1)
  - DERMATITIS EXFOLIATIVE [None]
